FAERS Safety Report 16265611 (Version 1)
Quarter: 2019Q2

REPORT INFORMATION
  Report Type: Spontaneous
  Country: US (occurrence: US)
  Receive Date: 20190328
  Receipt Date: 20190328
  Transmission Date: 20190711
  Serious: No
  Sender: FDA-Public Use
  Company Number: None

PATIENT
  Age: 57 Year
  Sex: Male

DRUGS (1)
  1. HARVONI [Suspect]
     Active Substance: LEDIPASVIR\SOFOSBUVIR
     Dates: start: 201903

REACTIONS (8)
  - Suicidal ideation [None]
  - Pollakiuria [None]
  - Headache [None]
  - Pruritus [None]
  - Abdominal discomfort [None]
  - Abnormal dreams [None]
  - Pain [None]
  - Erythema [None]

NARRATIVE: CASE EVENT DATE: 20190301
